FAERS Safety Report 9331798 (Version 1)
Quarter: 2013Q2

REPORT INFORMATION
  Report Type: Spontaneous
  Country: KR (occurrence: None)
  Receive Date: 20130603
  Receipt Date: 20130603
  Transmission Date: 20140414
  Serious: Yes (Death)
  Sender: FDA-Public Use
  Company Number: CIP-2013-00139

PATIENT
  Sex: Female

DRUGS (2)
  1. CARBOPLATIN [Suspect]
     Indication: SARCOMA UTERUS
     Dosage: SERUM CONCENTRATION-TIME CURVE (AUC) + 5.0 OVER 30 MIN
     Route: 042
  2. PACLITAXEL [Suspect]
     Indication: SARCOMA UTERUS
     Route: 042

REACTIONS (1)
  - Septic shock [None]
